FAERS Safety Report 14650637 (Version 2)
Quarter: 2018Q1

REPORT INFORMATION
  Report Type: Spontaneous
  Country: TW (occurrence: TW)
  Receive Date: 20180316
  Receipt Date: 20180321
  Transmission Date: 20180509
  Serious: Yes (Other)
  Sender: FDA-Public Use
  Company Number: TW-PFIZER INC-2018108752

PATIENT
  Age: 56 Year
  Sex: Male

DRUGS (2)
  1. FLUOROURACIL. [Suspect]
     Active Substance: FLUOROURACIL
     Indication: GASTRIC CANCER STAGE III
     Dosage: 3000 MG/M2, CYCLIC (BIWEEKLY)
  2. DOCETAXEL. [Suspect]
     Active Substance: DOCETAXEL
     Indication: GASTRIC CANCER STAGE III
     Dosage: 40 MG/M2, CYCLIC (BIWEEKLY)

REACTIONS (3)
  - Nail ridging [Recovered/Resolved]
  - Nail toxicity [Recovered/Resolved]
  - Biliary tract infection [Unknown]
